FAERS Safety Report 23973831 (Version 1)
Quarter: 2024Q2

REPORT INFORMATION
  Report Type: Spontaneous
  Country: US (occurrence: US)
  Receive Date: 20240613
  Receipt Date: 20240613
  Transmission Date: 20240716
  Serious: Yes (Other)
  Sender: FDA-Public Use
  Company Number: US-Pharmaand-2024000412

PATIENT
  Sex: Female

DRUGS (2)
  1. PEGASYS [Suspect]
     Active Substance: PEGINTERFERON ALFA-2A
     Indication: Chronic myeloid leukaemia
     Dosage: 45 MCG/WK
     Route: 058
  2. PEGASYS [Suspect]
     Active Substance: PEGINTERFERON ALFA-2A
     Dosage: 180 MCG/WK
     Route: 058

REACTIONS (3)
  - Philadelphia chromosome positive [Unknown]
  - Off label use [Unknown]
  - Exposure during pregnancy [Unknown]
